FAERS Safety Report 7904676-3 (Version None)
Quarter: 2011Q4

REPORT INFORMATION
  Report Type: 
  Country: None (occurrence: None)
  Receive Date: 20111109
  Receipt Date: 20111102
  Transmission Date: 20120403
  Serious: Yes (Other)
  Sender: FDA-Public Use
  Company Number: FR-VIIV HEALTHCARE LIMITED-B0747761A

PATIENT
  Age: 46 Year
  Sex: Male
  Weight: 62 kg

DRUGS (2)
  1. VIRAMUNE [Concomitant]
     Indication: HIV INFECTION
     Route: 065
     Dates: start: 20060101
  2. ABACAVIR SULFATE AND LAMIVUDINE [Suspect]
     Indication: HIV INFECTION
     Dosage: 1UNIT PER DAY
     Route: 048
     Dates: start: 20100922, end: 20110608

REACTIONS (5)
  - ASTHENIA [None]
  - CYTOLYTIC HEPATITIS [None]
  - CHOLESTASIS [None]
  - NAUSEA [None]
  - DECREASED APPETITE [None]
